FAERS Safety Report 9665644 (Version 1)
Quarter: 2013Q4

REPORT INFORMATION
  Report Type: Spontaneous
  Country: US (occurrence: None)
  Receive Date: 20131031
  Receipt Date: 20131031
  Transmission Date: 20140711
  Serious: No
  Sender: FDA-Public Use
  Company Number: None

PATIENT
  Age: 81 Year
  Sex: Male

DRUGS (2)
  1. SENSIPAR [Suspect]
     Indication: HYPERPARATHYROIDISM
     Route: 048
     Dates: start: 20131016, end: 20131029
  2. SENSIPAR [Suspect]
     Indication: RENAL DISORDER
     Route: 048
     Dates: start: 20131016, end: 20131029

REACTIONS (1)
  - Rash generalised [None]
